FAERS Safety Report 5400397-X (Version None)
Quarter: 2007Q3

REPORT INFORMATION
  Report Type: 
  Country: None (occurrence: None)
  Receive Date: 20070730
  Receipt Date: 20070724
  Transmission Date: 20080115
  Serious: Yes (Other)
  Sender: FDA-Public Use
  Company Number: B0479339A

PATIENT
  Sex: Female

DRUGS (1)
  1. PAXIL [Suspect]
     Indication: PANIC DISORDER
     Dosage: 10MG TWICE PER DAY
     Route: 048
     Dates: start: 20070601, end: 20070629

REACTIONS (2)
  - FEELING ABNORMAL [None]
  - HALLUCINATION [None]
